FAERS Safety Report 8452067-1 (Version None)
Quarter: 2012Q2

REPORT INFORMATION
  Report Type: 
  Country: None (occurrence: None)
  Receive Date: 20120620
  Receipt Date: 20120608
  Transmission Date: 20120825
  Serious: Yes (Hospitalization)
  Sender: FDA-Public Use
  Company Number: IT-BRISTOL-MYERS SQUIBB COMPANY-16676405

PATIENT
  Age: 72 Year
  Sex: Male

DRUGS (7)
  1. FUROSEMIDE [Concomitant]
  2. RAMIPRIL [Concomitant]
     Dosage: 1 DF: 1 DOSE 10MG
  3. BISOPROLOL FUMARATE [Concomitant]
     Dosage: 1 DF: 1 DOSE CONGESCOR:2.5MG
  4. COUMADIN [Suspect]
     Indication: PROPHYLAXIS
     Route: 048
     Dates: start: 20110601, end: 20120523
  5. ASPIRIN [Suspect]
     Indication: PROPHYLAXIS
     Route: 048
     Dates: start: 20110701, end: 20120523
  6. ALLOPURINOL [Suspect]
     Indication: HYPERURICAEMIA
     Route: 048
     Dates: start: 20110701, end: 20120523
  7. IBRUPROFEN [Suspect]
     Indication: MUSCULOSKELETAL PAIN
     Dosage: 600MG 2 DOSES PER DAY
     Route: 048
     Dates: start: 20120521, end: 20120523

REACTIONS (4)
  - ANAEMIA [None]
  - GASTRITIS HAEMORRHAGIC [None]
  - INTERNATIONAL NORMALISED RATIO INCREASED [None]
  - GASTRIC ULCER HAEMORRHAGE [None]
